FAERS Safety Report 7638827-5 (Version None)
Quarter: 2011Q3

REPORT INFORMATION
  Report Type: 
  Country: None (occurrence: None)
  Receive Date: 20110727
  Receipt Date: 20110721
  Transmission Date: 20111222
  Serious: Yes (Other)
  Sender: FDA-Public Use
  Company Number: IT-BAXTER-2011BH023826

PATIENT
  Age: 66 Year
  Sex: Female

DRUGS (4)
  1. ANTIHISTAMINES [Concomitant]
     Indication: PROPHYLAXIS
     Route: 065
  2. ACETAMINOPHEN [Concomitant]
     Indication: PROPHYLAXIS
     Route: 065
  3. CORTICOSTEROIDS [Concomitant]
     Indication: PROPHYLAXIS
     Route: 065
  4. IMMUNE GLOBULIN INTRAVENOUS (HUMAN) [Suspect]
     Indication: INFECTION PROPHYLAXIS
     Route: 065
     Dates: end: 20080101

REACTIONS (4)
  - FLUSHING [None]
  - ANAPHYLACTOID REACTION [None]
  - PYREXIA [None]
  - MALAISE [None]
